FAERS Safety Report 9719245 (Version 2)
Quarter: 2013Q4

REPORT INFORMATION
  Report Type: Report from Study
  Country: US (occurrence: US)
  Receive Date: 20131127
  Receipt Date: 20131127
  Transmission Date: 20140711
  Serious: Yes (Hospitalization)
  Sender: FDA-Public Use
  Company Number: US-ACTELION-A-NJ2013-90385

PATIENT
  Age: 76 Year
  Sex: Female

DRUGS (16)
  1. TRACLEER [Suspect]
     Indication: PULMONARY ARTERIAL HYPERTENSION
     Dosage: UNK
     Route: 048
  2. TRACLEER [Suspect]
     Dosage: 125 MG, BID
     Route: 048
  3. ADCIRCA [Concomitant]
     Dosage: 40 MG, QD
  4. COUMADIN [Concomitant]
     Dosage: 5 MG, 4 DAYS A WEEK
  5. COUMADIN [Concomitant]
     Dosage: 2.5 MG, 3 DAYS A WEEK
  6. OMEPRAZOLE [Concomitant]
     Dosage: 40 MG, QD
  7. FERROUS SULFATE [Concomitant]
     Dosage: 325 MG, BID
  8. EVISTA [Concomitant]
     Dosage: 60 MG, QD
  9. TYLENOL [Concomitant]
     Dosage: 650 MG, BID
  10. VITAMIN D [Concomitant]
     Dosage: 1000 MG, QD
  11. TUMS [Concomitant]
     Dosage: 1000 MG, QD
  12. FOLIC ACID [Concomitant]
     Dosage: 0.8 MG, QD
  13. OXYCONTIN [Concomitant]
     Dosage: 40 MG, Q12HRS
  14. COLACE [Concomitant]
     Dosage: 100 MG, PRN
  15. PREDNISONE [Concomitant]
     Dosage: 5 MG, QD
  16. LOSARTAN [Concomitant]
     Dosage: 25 MG, UNK

REACTIONS (3)
  - Atrial fibrillation [Unknown]
  - Respiratory tract congestion [Not Recovered/Not Resolved]
  - Anaemia [Unknown]
